FAERS Safety Report 22210036 (Version 3)
Quarter: 2023Q2

REPORT INFORMATION
  Report Type: Report from Study
  Country: US (occurrence: US)
  Receive Date: 20230414
  Receipt Date: 20230626
  Transmission Date: 20230722
  Serious: Yes (Other)
  Sender: FDA-Public Use
  Company Number: US-ABBVIE-4726268

PATIENT
  Sex: Female

DRUGS (3)
  1. HUMIRA [Suspect]
     Active Substance: ADALIMUMAB
     Indication: Hidradenitis
     Route: 058
     Dates: start: 20210608
  2. HUMIRA [Suspect]
     Active Substance: ADALIMUMAB
     Dosage: LAST ADMIN DATE 2021
     Route: 058
     Dates: start: 20210325
  3. PREDNISONE [Concomitant]
     Active Substance: PREDNISONE
     Indication: Product used for unknown indication

REACTIONS (2)
  - Hidradenitis [Recovering/Resolving]
  - COVID-19 [Unknown]
